FAERS Safety Report 24156178 (Version 1)
Quarter: 2024Q3

REPORT INFORMATION
  Report Type: Spontaneous
  Country: AU (occurrence: AU)
  Receive Date: 20240731
  Receipt Date: 20240731
  Transmission Date: 20241017
  Serious: Yes (Other)
  Sender: ACCORD
  Company Number: None

PATIENT
  Age: 53 Year
  Sex: Female

DRUGS (13)
  1. AZACITIDINE [Suspect]
     Active Substance: AZACITIDINE
     Indication: Product used for unknown indication
  2. CYTARABINE [Suspect]
     Active Substance: CYTARABINE
     Indication: Product used for unknown indication
  3. THYMOCYTE IMMUNE GLOBULIN NOS [Suspect]
     Active Substance: THYMOCYTE IMMUNE GLOBULIN NOS
     Indication: Product used for unknown indication
  4. DAUNORUBICIN [Suspect]
     Active Substance: DAUNORUBICIN
  5. FLUDARABINE PHOSPHATE [Suspect]
     Active Substance: FLUDARABINE PHOSPHATE
     Indication: Product used for unknown indication
  6. LENALIDOMIDE [Suspect]
     Active Substance: LENALIDOMIDE
     Indication: Product used for unknown indication
  7. METHYLPREDNISOLONE [Suspect]
     Active Substance: METHYLPREDNISOLONE
     Indication: Product used for unknown indication
  8. MELPHALAN [Suspect]
     Active Substance: MELPHALAN
  9. VENETOCLAX [Suspect]
     Active Substance: VENETOCLAX
  10. BETAMETHASONE DIPROPIONATE [Concomitant]
     Active Substance: BETAMETHASONE DIPROPIONATE
  11. CYCLOSPORINE [Concomitant]
     Active Substance: CYCLOSPORINE
  12. LAMOTRIGINE [Concomitant]
     Active Substance: LAMOTRIGINE
  13. POSACONAZOLE [Concomitant]
     Active Substance: POSACONAZOLE

REACTIONS (6)
  - Bacteraemia [Unknown]
  - Protothecosis [Unknown]
  - Staphylococcal bacteraemia [Unknown]
  - Systemic candida [Unknown]
  - Candida infection [Unknown]
  - Haematological infection [Unknown]
